FAERS Safety Report 20430515 (Version 1)
Quarter: 2022Q1

REPORT INFORMATION
  Report Type: Report from Study
  Country: FR (occurrence: FR)
  Receive Date: 20220204
  Receipt Date: 20220204
  Transmission Date: 20220423
  Serious: Yes (Hospitalization, Other)
  Sender: FDA-Public Use
  Company Number: FR-SERVIER-S20009868

PATIENT

DRUGS (6)
  1. ONCASPAR [Suspect]
     Active Substance: PEGASPARGASE
     Indication: Acute lymphocytic leukaemia
     Dosage: 730 IU, QD, D8, D36, (D64)
     Route: 042
     Dates: start: 20200708, end: 20200805
  2. TN UNSPECIFIED [Concomitant]
     Indication: Acute lymphocytic leukaemia
     Dosage: 0.8 MG, D1, D8, D29, D36, D57, D64
     Route: 042
     Dates: start: 20200701
  3. TN UNSPECIFIED [Concomitant]
     Indication: Acute lymphocytic leukaemia
     Dosage: 10 MG, D2, D30, D58
     Route: 037
     Dates: start: 20200701
  4. TN UNSPECIFIED [Concomitant]
     Dosage: 15 MG, D8, D15, D22, D36, D43, D50, D64, D71, D78
     Route: 048
     Dates: start: 20200708
  5. TN UNSPECIFIED [Concomitant]
     Indication: Acute lymphocytic leukaemia
     Dosage: 3.5 MG, D1-D5, D29-D33, D57-D61
     Route: 048
     Dates: start: 20200701
  6. TN UNSPECIFIED [Concomitant]
     Indication: Acute lymphocytic leukaemia
     Dosage: 28 MG, D1-21, D29-49, D55-D77
     Route: 048
     Dates: start: 20200701

REACTIONS (2)
  - Sepsis [Recovered/Resolved]
  - Cerebral venous sinus thrombosis [Recovered/Resolved]

NARRATIVE: CASE EVENT DATE: 20200812
